FAERS Safety Report 13325015 (Version 1)
Quarter: 2017Q1

REPORT INFORMATION
  Report Type: Spontaneous
  Country: US (occurrence: US)
  Receive Date: 20170310
  Receipt Date: 20170310
  Transmission Date: 20170428
  Serious: Yes (Other)
  Sender: FDA-Public Use
  Company Number: US-SUNOVION-2017SUN001055

PATIENT
  Age: 64 Year
  Sex: Female
  Weight: 65.76 kg

DRUGS (5)
  1. VITAMIN D [Concomitant]
     Active Substance: CHOLECALCIFEROL
     Dosage: UNK, HS
     Route: 048
  2. APTIOM [Suspect]
     Active Substance: ESLICARBAZEPINE ACETATE
     Indication: SEIZURE
     Dosage: UNK, QD
     Route: 048
     Dates: start: 2016
  3. APTIOM [Suspect]
     Active Substance: ESLICARBAZEPINE ACETATE
     Indication: MIGRAINE
  4. ZONISAMIDE. [Concomitant]
     Active Substance: ZONISAMIDE
     Dosage: UNK, QD
     Route: 048
  5. ASPIRIN. [Concomitant]
     Active Substance: ASPIRIN
     Dosage: 80 MG, HS
     Route: 048

REACTIONS (4)
  - Somnolence [Not Recovered/Not Resolved]
  - Fatigue [Not Recovered/Not Resolved]
  - Weight decreased [Not Recovered/Not Resolved]
  - Decreased appetite [Not Recovered/Not Resolved]

NARRATIVE: CASE EVENT DATE: 2016
